FAERS Safety Report 18238835 (Version 4)
Quarter: 2021Q4

REPORT INFORMATION
  Report Type: Report from Study
  Country: FR (occurrence: FR)
  Receive Date: 20200907
  Receipt Date: 20211126
  Transmission Date: 20220303
  Serious: Yes (Hospitalization)
  Sender: FDA-Public Use
  Company Number: FR-JNJFOC-20200837818

PATIENT
  Age: 49 Year
  Sex: Male
  Weight: 60 kg

DRUGS (3)
  1. TRABECTEDIN [Suspect]
     Active Substance: TRABECTEDIN
     Indication: Solitary fibrous tumour
     Route: 042
     Dates: start: 20200814
  2. FOSAMAX [Concomitant]
     Active Substance: ALENDRONATE SODIUM
     Route: 065
  3. CALCIUM CARBONATE\CHOLECALCIFEROL [Concomitant]
     Active Substance: CALCIUM CARBONATE\CHOLECALCIFEROL
     Dosage: 1 SACHET
     Route: 065

REACTIONS (2)
  - Catheter site inflammation [Recovered/Resolved]
  - Extravasation [Unknown]

NARRATIVE: CASE EVENT DATE: 20200816
